FAERS Safety Report 20573030 (Version 3)
Quarter: 2022Q2

REPORT INFORMATION
  Report Type: Spontaneous
  Country: JP (occurrence: JP)
  Receive Date: 20220309
  Receipt Date: 20220408
  Transmission Date: 20220721
  Serious: Yes (Death, Hospitalization)
  Sender: FDA-Public Use
  Company Number: JP-Eisai-202112459_LEN-EC_P_1

PATIENT
  Age: 50 Year
  Sex: Female

DRUGS (2)
  1. LENVIMA [Suspect]
     Active Substance: LENVATINIB
     Indication: Endometrial cancer
     Route: 048
     Dates: start: 20220131, end: 20220223
  2. KEYTRUDA [Suspect]
     Active Substance: PEMBROLIZUMAB
     Indication: Endometrial cancer
     Route: 041
     Dates: start: 20220131, end: 20220223

REACTIONS (8)
  - Fistula [Fatal]
  - Acute abdomen [Unknown]
  - Respiratory failure [Fatal]
  - Hypothyroidism [Recovering/Resolving]
  - Arthralgia [Recovering/Resolving]
  - Pyrexia [Recovering/Resolving]
  - Hypertension [Recovering/Resolving]
  - Cortisol increased [Unknown]

NARRATIVE: CASE EVENT DATE: 20220207
